FAERS Safety Report 8177910-5 (Version None)
Quarter: 2012Q1

REPORT INFORMATION
  Report Type: 
  Country: None (occurrence: None)
  Receive Date: 20120130
  Receipt Date: 20110120
  Transmission Date: 20120608
  Serious: Yes (Other)
  Sender: FDA-Public Use
  Company Number: 025964

PATIENT
  Sex: Male
  Weight: 70.3 kg

DRUGS (2)
  1. LEVETIRACETAM [Suspect]
     Indication: CONVULSION
     Dosage: (250 MG BID ORAL), (250 MG QD ORAL), (250 MG BID ORAL)
     Route: 048
     Dates: start: 20070101
  2. LEVETIRACETAM [Suspect]
     Indication: CONVULSION
     Dosage: (250 MG BID ORAL), (250 MG QD ORAL), (250 MG BID ORAL)
     Route: 048
     Dates: start: 20090101

REACTIONS (1)
  - PARKINSON'S DISEASE [None]
